FAERS Safety Report 5774812-6 (Version None)
Quarter: 2008Q2

REPORT INFORMATION
  Report Type: 
  Country: None (occurrence: None)
  Receive Date: 20080617
  Receipt Date: 20080609
  Transmission Date: 20081010
  Serious: Yes (Hospitalization)
  Sender: FDA-Public Use
  Company Number: US-ALLERGAN-0806926US

PATIENT
  Sex: Female
  Weight: 52.154 kg

DRUGS (4)
  1. BOTOX [Suspect]
     Indication: THORACIC OUTLET SYNDROME
     Dosage: UNK, SINGLE
     Route: 030
     Dates: start: 20080602, end: 20080602
  2. TYLENOL [Concomitant]
     Dosage: UNK, PRN
  3. MULTI-VITAMIN [Concomitant]
  4. ROBAXIN [Concomitant]

REACTIONS (2)
  - COLLAPSE OF LUNG [None]
  - HEMIPARESIS [None]
